FAERS Safety Report 9835029 (Version 1)
Quarter: 2014Q1

REPORT INFORMATION
  Report Type: Spontaneous
  Country: US (occurrence: US)
  Receive Date: 20140122
  Receipt Date: 20140122
  Transmission Date: 20141002
  Serious: Yes (Hospitalization)
  Sender: FDA-Public Use
  Company Number: US-ACORDA-ACO_31833_2012

PATIENT
  Age: 67 Year
  Sex: Female
  Weight: 72.56 kg

DRUGS (7)
  1. ZANAFLEX TABLETS [Suspect]
     Dosage: 5 MG, QID
     Dates: start: 20120630, end: 20120802
  2. LYRICA [Suspect]
     Indication: MYELITIS TRANSVERSE
     Dosage: 50 MG, TID
     Dates: start: 20120630
  3. LYRICA [Suspect]
     Indication: NEUROPATHY PERIPHERAL
  4. LYRICA [Suspect]
     Indication: MUSCLE SPASMS
  5. GABAPENTIN [Suspect]
     Indication: PRODUCT USED FOR UNKNOWN INDICATION
  6. VALIUM [Concomitant]
     Indication: MUSCLE SPASMS
     Dosage: 5 MG, TID
     Dates: start: 2012
  7. NORVASC [Suspect]
     Indication: BLOOD PRESSURE

REACTIONS (2)
  - Blood pressure decreased [Unknown]
  - Drug ineffective [Unknown]
